FAERS Safety Report 4722863-2 (Version None)
Quarter: 2005Q3

REPORT INFORMATION
  Report Type: 
  Country: None (occurrence: None)
  Receive Date: 20050722
  Receipt Date: 20050614
  Transmission Date: 20060218
  Serious: Yes (Disabling)
  Sender: FDA-Public Use
  Company Number: DE-GLAXOSMITHKLINE-D0046818A

PATIENT
  Age: 10 Year
  Sex: Female

DRUGS (1)
  1. FLUTIDE MITE [Suspect]
     Route: 055
     Dates: start: 20041101

REACTIONS (1)
  - TOOTH DISCOLOURATION [None]
